FAERS Safety Report 19687021 (Version 1)
Quarter: 2021Q3

REPORT INFORMATION
  Report Type: Spontaneous
  Country: JP (occurrence: JP)
  Receive Date: 20210811
  Receipt Date: 20210811
  Transmission Date: 20211014
  Serious: Yes (Other)
  Sender: FDA-Public Use
  Company Number: JP-SA-2021SA264658

PATIENT
  Age: 50 Year
  Sex: Female

DRUGS (3)
  1. ELPLAT [Suspect]
     Active Substance: OXALIPLATIN
     Dosage: UNK
  2. FOLFOX 6 [Concomitant]
     Active Substance: FLUOROURACIL\LEUCOVORIN CALCIUM\OXALIPLATIN
     Dosage: UNK
  3. PANITUMUMAB [Concomitant]
     Active Substance: PANITUMUMAB
     Dosage: UNK

REACTIONS (2)
  - Liver injury [Unknown]
  - Drug hypersensitivity [Unknown]
